FAERS Safety Report 18723633 (Version 1)
Quarter: 2021Q1

REPORT INFORMATION
  Report Type: Spontaneous
  Country: US (occurrence: US)
  Receive Date: 20210108
  Receipt Date: 20210108
  Transmission Date: 20210419
  Serious: No
  Sender: FDA-Public Use
  Company Number: None

PATIENT
  Sex: Female

DRUGS (1)
  1. ENOXAPARIN SODIUM 40MG/0.4ML SC SOLN [Suspect]
     Active Substance: ENOXAPARIN SODIUM

REACTIONS (2)
  - Exposure during pregnancy [None]
  - Pregnancy [None]
